FAERS Safety Report 22305444 (Version 2)
Quarter: 2023Q2

REPORT INFORMATION
  Report Type: Spontaneous
  Country: PT (occurrence: None)
  Receive Date: 20230510
  Receipt Date: 20230613
  Transmission Date: 20230722
  Serious: Yes (Other)
  Sender: FDA-Public Use
  Company Number: PT-Merck Healthcare KGaA-9400564

PATIENT
  Age: 73 Year
  Sex: Male

DRUGS (6)
  1. BAVENCIO [Suspect]
     Active Substance: AVELUMAB
     Indication: Bladder transitional cell carcinoma
     Route: 042
     Dates: start: 20221019
  2. BAVENCIO [Suspect]
     Active Substance: AVELUMAB
     Route: 042
     Dates: start: 20230307
  3. TAMSULOSIN [Concomitant]
     Active Substance: TAMSULOSIN
     Indication: Product used for unknown indication
     Dosage: AT NIGHT
  4. ATORVASTATIN [Concomitant]
     Active Substance: ATORVASTATIN
     Indication: Product used for unknown indication
     Dosage: AT NIGHT
  5. SOLIFENACIN [Concomitant]
     Active Substance: SOLIFENACIN
     Indication: Product used for unknown indication
  6. NIMESULIDE [Concomitant]
     Active Substance: NIMESULIDE
     Indication: Product used for unknown indication

REACTIONS (1)
  - Encephalitis [Recovered/Resolved with Sequelae]

NARRATIVE: CASE EVENT DATE: 20230315
